FAERS Safety Report 21490568 (Version 1)
Quarter: 2022Q4

REPORT INFORMATION
  Report Type: Spontaneous
  Country: EG (occurrence: EG)
  Receive Date: 20221021
  Receipt Date: 20221021
  Transmission Date: 20230113
  Serious: Yes (Other)
  Sender: FDA-Public Use
  Company Number: EG-NOVOPROD-969002

PATIENT
  Age: 575 Month
  Sex: Female
  Weight: 82.5 kg

DRUGS (6)
  1. INSULIN HUMAN [Suspect]
     Active Substance: INSULIN HUMAN
     Indication: Diabetes mellitus
     Dosage: 55 IU, QD (30 U MORNING AND 25 U NIGHT)
     Route: 058
     Dates: start: 2011
  2. SUGARLO PLUS [Concomitant]
     Indication: Diabetes mellitus
     Dosage: 2 AT MORNING AND 2 AT NIGHT  ( STRATED FROM 2 MONTHS)
     Route: 048
  3. AUGMENTIN [Concomitant]
     Active Substance: AMOXICILLIN\CLAVULANATE POTASSIUM
     Indication: Antibiotic therapy
     Dosage: 2 TAB/DAY (STOPPED IT FROM 3 DAYS)
     Route: 048
     Dates: start: 20220918
  4. FUSIDIC ACID [Concomitant]
     Active Substance: FUSIDIC ACID
     Indication: Antibiotic therapy
     Dosage: 2 TIMES/DAY ~(STOPPED IT FROM ONE WEEK)
     Route: 061
     Dates: start: 20220918
  5. ALPHINTERN [Concomitant]
     Indication: Antiinflammatory therapy
     Dosage: 3 TAB/DAY (STOPPED IT FROM 3 DAYS)
     Route: 048
     Dates: start: 20220918
  6. CIDOPHAGE [Concomitant]
     Indication: Diabetes mellitus
     Dosage: 1 TAB AFTER BREAKFAST AND 1 TAB AFTER DINNER ( STARTED FROM 2011 AND STOPPED IT FROM 2 MONTHS)
     Route: 048
     Dates: start: 2011

REACTIONS (3)
  - Abscess [Not Recovered/Not Resolved]
  - Hyperglycaemia [Not Recovered/Not Resolved]
  - Drug ineffective [Unknown]
